FAERS Safety Report 15246450 (Version 1)
Quarter: 2018Q3

REPORT INFORMATION
  Report Type: Spontaneous
  Country: US (occurrence: US)
  Receive Date: 20180806
  Receipt Date: 20180806
  Transmission Date: 20181010
  Serious: No
  Sender: FDA-Public Use
  Company Number: US-UNITED THERAPEUTICS-UNT-2018-011000

PATIENT
  Sex: Female
  Weight: 78.46 kg

DRUGS (6)
  1. TYVASO [Suspect]
     Active Substance: TREPROSTINIL
     Dosage: 18?72 MICROGRAMS, QID
  2. WARFARIN [Concomitant]
     Active Substance: WARFARIN
     Indication: PRODUCT USED FOR UNKNOWN INDICATION
     Route: 065
  3. TYVASO [Suspect]
     Active Substance: TREPROSTINIL
     Indication: PULMONARY ARTERIAL HYPERTENSION
     Dosage: 18?54 MICROGRAMS, QID
     Dates: start: 20170721
  4. TYVASO [Suspect]
     Active Substance: TREPROSTINIL
     Dosage: 72 ?G, QID
     Dates: start: 2018
  5. ADEMPAS [Concomitant]
     Active Substance: RIOCIGUAT
     Indication: PRODUCT USED FOR UNKNOWN INDICATION
     Route: 065
  6. TYVASO [Suspect]
     Active Substance: TREPROSTINIL
     Dosage: 54 ?G, UNK

REACTIONS (6)
  - Malaise [Unknown]
  - Nausea [Unknown]
  - Diarrhoea [Unknown]
  - Off label use [Unknown]
  - Vomiting [Unknown]
  - Gastroenteritis viral [Unknown]
